FAERS Safety Report 24630018 (Version 1)
Quarter: 2024Q4

REPORT INFORMATION
  Report Type: Spontaneous
  Country: US (occurrence: US)
  Receive Date: 20241118
  Receipt Date: 20241118
  Transmission Date: 20250115
  Serious: No
  Sender: GRIFOLS
  Company Number: US-IGSA-BIG0028956

PATIENT
  Sex: Male
  Weight: 58.9 kg

DRUGS (3)
  1. XEMBIFY [Suspect]
     Active Substance: HUMAN IMMUNOGLOBULIN G
     Indication: Immune system disorder
     Dosage: 7 GRAM, Q.WK.
     Route: 058
     Dates: start: 20210124
  2. XEMBIFY [Suspect]
     Active Substance: HUMAN IMMUNOGLOBULIN G
     Indication: Ataxia telangiectasia
     Dosage: 7 GRAM, Q.WK.
     Route: 058
     Dates: start: 20210124
  3. OMEPRAZOLE [Concomitant]
     Active Substance: OMEPRAZOLE
     Dosage: UNK UNK, QD

REACTIONS (5)
  - Fungal infection [Not Recovered/Not Resolved]
  - Tinea pedis [Not Recovered/Not Resolved]
  - Molluscum contagiosum [Not Recovered/Not Resolved]
  - Ingrowing nail [Not Recovered/Not Resolved]
  - Viral infection [Not Recovered/Not Resolved]
